FAERS Safety Report 7968456-5 (Version None)
Quarter: 2011Q4

REPORT INFORMATION
  Report Type: 
  Country: None (occurrence: None)
  Receive Date: 20111122
  Receipt Date: 20110808
  Transmission Date: 20120403
  Serious: No
  Sender: FDA-Public Use
  Company Number: PHHY2011US02388

PATIENT
  Age: 42 Year
  Sex: Female

DRUGS (6)
  1. GILENYA [Suspect]
     Dosage: 0.5 MG, QD, ORAL
     Route: 048
     Dates: start: 20101207
  2. NORETHIN (ETHINYLESTRADIOL, NORETHISTERONE) [Concomitant]
  3. CALCITRATE (CALCIUM) [Concomitant]
  4. VITAMIN D [Concomitant]
  5. MULTIVITAMIN [Concomitant]
  6. ZYRTEC [Concomitant]

REACTIONS (4)
  - PARAESTHESIA [None]
  - HYPOAESTHESIA [None]
  - CHEST PAIN [None]
  - DIARRHOEA [None]
